FAERS Safety Report 8842456 (Version 1)
Quarter: 2012Q4

REPORT INFORMATION
  Report Type: Spontaneous
  Country: US (occurrence: None)
  Receive Date: 20121015
  Receipt Date: 20121015
  Transmission Date: 20130627
  Serious: Yes (Other)
  Sender: FDA-Public Use
  Company Number: None

PATIENT
  Age: 33 Year
  Sex: Female
  Weight: 54.43 kg

DRUGS (2)
  1. LYRICA [Suspect]
     Indication: FIBROMYALGIA
     Dosage: 100 MG 3X DAY po
     Route: 048
     Dates: start: 20120801, end: 20120925
  2. KEPPRA [Suspect]
     Indication: SEIZURES
     Dosage: 100 MG 2x DAY po
     Route: 048
     Dates: start: 20120910, end: 20120925

REACTIONS (1)
  - Thinking abnormal [None]
